FAERS Safety Report 11749523 (Version 1)
Quarter: 2015Q4

REPORT INFORMATION
  Report Type: Spontaneous
  Country: ES (occurrence: ES)
  Receive Date: 20151118
  Receipt Date: 20151118
  Transmission Date: 20160304
  Serious: Yes (Other)
  Sender: FDA-Public Use
  Company Number: ES-WATSON-2015-19356

PATIENT
  Age: 5 Year
  Sex: Female
  Weight: 30 kg

DRUGS (1)
  1. TRIPTORELIN (UNKNOWN) [Suspect]
     Active Substance: TRIPTORELIN
     Indication: PRECOCIOUS PUBERTY
     Dosage: UNK
     Route: 065

REACTIONS (3)
  - Benign intracranial hypertension [Unknown]
  - Petechiae [Unknown]
  - Pyrexia [Recovered/Resolved]
